FAERS Safety Report 9968862 (Version 1)
Quarter: 2014Q1

REPORT INFORMATION
  Report Type: Spontaneous
  Country: US (occurrence: US)
  Receive Date: 20140306
  Receipt Date: 20140306
  Transmission Date: 20141002
  Serious: No
  Sender: FDA-Public Use
  Company Number: US-ABBVIE-13P-163-1143902-00

PATIENT
  Age: 54 Year
  Sex: Male
  Weight: 149.82 kg

DRUGS (14)
  1. HUMIRA [Suspect]
     Indication: RHEUMATOID ARTHRITIS
     Dates: start: 201202
  2. METHOTREXATE [Concomitant]
     Indication: RHEUMATOID ARTHRITIS
  3. METOLAZONE [Concomitant]
     Indication: FLUID RETENTION
  4. POTASSIUM [Concomitant]
     Indication: HYPOKALAEMIA
  5. FOLIC ACID [Concomitant]
     Indication: VITAMIN SUPPLEMENTATION
  6. LISINOPRIL [Concomitant]
     Indication: HYPERTENSION
  7. FUROSEMIDE [Concomitant]
     Indication: FLUID RETENTION
  8. METFORMIN [Concomitant]
     Indication: DIABETES MELLITUS
  9. GLIPIZIDE [Concomitant]
     Indication: DIABETES MELLITUS
  10. PRAVASTATIN [Concomitant]
     Indication: BLOOD CHOLESTEROL INCREASED
  11. METOPROLOL [Concomitant]
     Indication: CARDIAC DISORDER
  12. AMITRIPTYLINE [Concomitant]
     Indication: INSOMNIA
  13. LITHIUM [Concomitant]
     Indication: DEPRESSION
  14. PREDNISONE [Concomitant]
     Indication: RHEUMATOID ARTHRITIS

REACTIONS (9)
  - Dyspepsia [Unknown]
  - Productive cough [Recovered/Resolved]
  - Insomnia [Unknown]
  - Abdominal pain upper [Not Recovered/Not Resolved]
  - Bronchitis [Recovered/Resolved]
  - Bronchitis [Recovered/Resolved]
  - Abdominal pain upper [Recovered/Resolved]
  - Pneumonia [Recovered/Resolved]
  - Pneumonia [Unknown]
